FAERS Safety Report 6180826-7 (Version None)
Quarter: 2009Q2

REPORT INFORMATION
  Report Type: 
  Country: None (occurrence: None)
  Receive Date: 20090504
  Receipt Date: 20090504
  Transmission Date: 20091009
  Serious: Yes (Other)
  Sender: FDA-Public Use
  Company Number: None

PATIENT
  Age: 45 Year
  Sex: Female
  Weight: 78.4723 kg

DRUGS (1)
  1. HUMIRA [Suspect]
     Indication: CROHN'S DISEASE
     Dosage: PRE MEASURED SHOT 1 EVERY 2 WEEKS ID
     Route: 026
     Dates: start: 20080101, end: 20090315

REACTIONS (1)
  - SYSTEMIC LUPUS ERYTHEMATOSUS [None]
